FAERS Safety Report 11749223 (Version 3)
Quarter: 2015Q4

REPORT INFORMATION
  Report Type: Spontaneous
  Country: US (occurrence: US)
  Receive Date: 20151118
  Receipt Date: 20151211
  Transmission Date: 20160304
  Serious: Yes (Other)
  Sender: FDA-Public Use
  Company Number: US-TEVA-608651USA

PATIENT
  Age: 52 Year
  Sex: Male
  Weight: 113.5 kg

DRUGS (5)
  1. ZYRTEC [Suspect]
     Active Substance: CETIRIZINE HYDROCHLORIDE
     Route: 065
     Dates: start: 20151029
  2. AZITHROMYCIN [Interacting]
     Active Substance: AZITHROMYCIN ANHYDROUS
     Dosage: 250 MG 2 FIRST DAY AND 1 FOR REMAINING 4 DAYS
     Route: 065
     Dates: start: 20151028, end: 20151031
  3. ADVIL [Interacting]
     Active Substance: IBUPROFEN
     Indication: HEADACHE
     Dosage: ON 01NOV2015 HAD 5 TABLETS FOR THE ENTIRE DAY
     Route: 065
     Dates: start: 20151024
  4. AUGMENTIN [Interacting]
     Active Substance: AMOXICILLIN\CLAVULANATE POTASSIUM
     Dosage: 250 MILLIGRAM DAILY;
     Route: 065
     Dates: start: 20151021, end: 20151026
  5. DOXYCYCLINE. [Interacting]
     Active Substance: DOXYCYCLINE
     Indication: INFECTION PROPHYLAXIS
     Dosage: 200 MILLIGRAM DAILY;
     Route: 065
     Dates: start: 20151031

REACTIONS (11)
  - Sinus headache [Unknown]
  - Drug interaction [Unknown]
  - Chest pain [Recovered/Resolved]
  - Neck pain [Unknown]
  - Cardiac flutter [Recovered/Resolved]
  - Tooth disorder [Unknown]
  - Pain [Recovered/Resolved]
  - Palpitations [Recovered/Resolved]
  - Drug ineffective [Unknown]
  - Sinus congestion [Unknown]
  - Heart rate increased [Recovered/Resolved]

NARRATIVE: CASE EVENT DATE: 20151101
